FAERS Safety Report 5036924-4 (Version None)
Quarter: 2006Q2

REPORT INFORMATION
  Report Type: 
  Country: None (occurrence: None)
  Receive Date: 20060628
  Receipt Date: 20060621
  Transmission Date: 20061013
  Serious: Yes (Hospitalization)
  Sender: FDA-Public Use
  Company Number: US-BRISTOL-MYERS SQUIBB COMPANY-13420112

PATIENT
  Age: 56 Year
  Sex: Female
  Weight: 55 kg

DRUGS (3)
  1. ERBITUX [Suspect]
     Indication: NEOPLASM MALIGNANT
     Route: 042
     Dates: start: 20060517, end: 20060517
  2. ALIMTA [Suspect]
     Indication: NEOPLASM MALIGNANT
     Route: 042
     Dates: start: 20060524, end: 20060524
  3. RADIOTHERAPY [Suspect]

REACTIONS (2)
  - DYSPHAGIA [None]
  - MUCOSAL INFLAMMATION [None]
